FAERS Safety Report 26108733 (Version 1)
Quarter: 2025Q4

REPORT INFORMATION
  Report Type: Spontaneous
  Country: US (occurrence: None)
  Receive Date: 20251128
  Receipt Date: 20251128
  Transmission Date: 20260118
  Serious: Yes (Death)
  Sender: FDA-CTU
  Company Number: None

PATIENT
  Age: 92 Year
  Sex: Male
  Weight: 72 kg

DRUGS (1)
  1. OPDIVO [Suspect]
     Active Substance: NIVOLUMAB
     Indication: Malignant melanoma
     Dates: start: 20251013, end: 20251013

REACTIONS (4)
  - Respiratory failure [None]
  - Myocarditis [None]
  - Muscle atrophy [None]
  - Muscular weakness [None]

NARRATIVE: CASE EVENT DATE: 20251013
